FAERS Safety Report 17567148 (Version 3)
Quarter: 2020Q2

REPORT INFORMATION
  Report Type: Spontaneous
  Country: IT (occurrence: IT)
  Receive Date: 20200320
  Receipt Date: 20200612
  Transmission Date: 20200713
  Serious: Yes (Death, Life-Threatening, Hospitalization, Other)
  Sender: FDA-Public Use
  Company Number: NVSC2020IT079528

PATIENT
  Age: 52 Year
  Sex: Female

DRUGS (6)
  1. PREDNISONE. [Suspect]
     Active Substance: PREDNISONE
     Indication: LIVER TRANSPLANT
     Dosage: UNK
     Route: 065
  2. MYCOPHENOLATE MOFETIL. [Suspect]
     Active Substance: MYCOPHENOLATE MOFETIL
     Indication: IMMUNOSUPPRESSANT DRUG THERAPY
  3. PREDNISONE. [Suspect]
     Active Substance: PREDNISONE
     Indication: IMMUNOSUPPRESSANT DRUG THERAPY
  4. CYCLOSPORINE. [Suspect]
     Active Substance: CYCLOSPORINE
     Indication: LIVER TRANSPLANT
     Dosage: 8 MG/KG, QD
     Route: 065
  5. MYCOPHENOLATE MOFETIL. [Suspect]
     Active Substance: MYCOPHENOLATE MOFETIL
     Indication: LIVER TRANSPLANT
     Dosage: UNK
     Route: 065
  6. CYCLOSPORINE. [Suspect]
     Active Substance: CYCLOSPORINE
     Indication: IMMUNOSUPPRESSANT DRUG THERAPY

REACTIONS (15)
  - Altered state of consciousness [Fatal]
  - Encephalopathy [Recovering/Resolving]
  - Locked-in syndrome [Recovering/Resolving]
  - Brain oedema [Recovered/Resolved]
  - Unresponsive to stimuli [Fatal]
  - Toxicity to various agents [Fatal]
  - Posterior reversible encephalopathy syndrome [Fatal]
  - Neurotoxicity [Fatal]
  - Nervous system disorder [Unknown]
  - Psychomotor hyperactivity [Fatal]
  - Depressed level of consciousness [Fatal]
  - Eye movement disorder [Fatal]
  - Muscle disorder [Fatal]
  - Product use in unapproved indication [Unknown]
  - Confusional state [Fatal]
